FAERS Safety Report 4741108-0 (Version None)
Quarter: 2005Q3

REPORT INFORMATION
  Report Type: 
  Country: None (occurrence: None)
  Receive Date: 20050808
  Receipt Date: 20050721
  Transmission Date: 20060218
  Serious: Yes (Death)
  Sender: FDA-Public Use
  Company Number: US_0507120063

PATIENT
  Age: 75 Year
  Sex: Female
  Weight: 105 kg

DRUGS (1)
  1. HUMULIN 70/30 [Suspect]
     Indication: DIABETES MELLITUS INSULIN-DEPENDENT
     Dosage: 174 U DAY
     Dates: start: 19850101

REACTIONS (3)
  - DIABETIC COMPLICATION [None]
  - LUNG DISORDER [None]
  - RENAL DISORDER [None]
